FAERS Safety Report 7736808-4 (Version None)
Quarter: 2011Q3

REPORT INFORMATION
  Report Type: 
  Country: None (occurrence: None)
  Receive Date: 20110908
  Receipt Date: 20110908
  Transmission Date: 20111222
  Serious: Yes (Hospitalization)
  Sender: FDA-Public Use
  Company Number: None

PATIENT
  Age: 26 Year
  Sex: Female
  Weight: 99.8 kg

DRUGS (4)
  1. METFORMIN HCL [Concomitant]
  2. CLOMID [Concomitant]
     Indication: ASSISTED FERTILISATION
     Dosage: 150 MG
     Route: 048
  3. CLOMIPRAMINE HCL [Suspect]
     Dosage: 150 MG
     Route: 048
  4. NSAID [Concomitant]

REACTIONS (6)
  - SENSORY DISTURBANCE [None]
  - CHEST DISCOMFORT [None]
  - FEELING JITTERY [None]
  - PALPITATIONS [None]
  - DRUG DISPENSING ERROR [None]
  - WRONG DRUG ADMINISTERED [None]
